FAERS Safety Report 4620708-2 (Version None)
Quarter: 2005Q1

REPORT INFORMATION
  Report Type: 
  Country: None (occurrence: None)
  Receive Date: 20050325
  Receipt Date: 20050314
  Transmission Date: 20050727
  Serious: Yes (Other)
  Sender: FDA-Public Use
  Company Number: 2005021014

PATIENT
  Sex: Male
  Weight: 97.0698 kg

DRUGS (5)
  1. CELEBREX [Suspect]
     Indication: ARTHRITIS
     Dosage: 200 MG (200 MG, 1 IN 1 D)
  2. VICODIN [Suspect]
     Indication: PAIN
     Dosage: ORAL
     Route: 048
     Dates: start: 20050119, end: 20050120
  3. ROFECOXIB [Concomitant]
     Indication: ILL-DEFINED DISORDER
  4. LEVOTHYROXINE SODIUM [Concomitant]
  5. WARFARIN (WAFARIN) [Concomitant]

REACTIONS (6)
  - COUGH [None]
  - DIZZINESS [None]
  - FEELING ABNORMAL [None]
  - GASTROINTESTINAL DISORDER [None]
  - GLAUCOMA [None]
  - SINUSITIS [None]
